FAERS Safety Report 17831346 (Version 1)
Quarter: 2020Q2

REPORT INFORMATION
  Report Type: Spontaneous
  Country: US (occurrence: US)
  Receive Date: 20200528
  Receipt Date: 20200528
  Transmission Date: 20200714
  Serious: No
  Sender: FDA-Public Use
  Company Number: US-ROCHE-2553327

PATIENT
  Sex: Female
  Weight: 66.74 kg

DRUGS (1)
  1. OCREVUS [Suspect]
     Active Substance: OCRELIZUMAB
     Indication: MULTIPLE SCLEROSIS
     Dosage: ONGOING: NO
     Route: 042

REACTIONS (5)
  - Oral pruritus [Recovered/Resolved]
  - Ear pruritus [Recovered/Resolved]
  - Erythema [Recovered/Resolved]
  - Underdose [Unknown]
  - Urticaria [Recovered/Resolved]

NARRATIVE: CASE EVENT DATE: 2020
